FAERS Safety Report 7383800-8 (Version None)
Quarter: 2011Q1

REPORT INFORMATION
  Report Type: 
  Country: None (occurrence: None)
  Receive Date: 20110322
  Receipt Date: 20110308
  Transmission Date: 20110831
  Serious: Yes (Other)
  Sender: FDA-Public Use
  Company Number: TPA2011A00976

PATIENT
  Sex: Male

DRUGS (3)
  1. PREVACID [Suspect]
  2. THERA M (FOLIC ACID, VITAMINS NOS, MINERALS NOS) [Suspect]
  3. NEXIUM [Suspect]

REACTIONS (1)
  - ULCER HAEMORRHAGE [None]
